FAERS Safety Report 15393716 (Version 1)
Quarter: 2018Q4

REPORT INFORMATION
  Report Type: Spontaneous
  Country: CA (occurrence: CA)
  Receive Date: 20180917
  Receipt Date: 20180917
  Transmission Date: 20190204
  Serious: Yes (Life-Threatening, Hospitalization, Other)
  Sender: FDA-Public Use
  Company Number: CA-PFIZER INC-2018375242

PATIENT
  Age: 36 Year
  Sex: Male
  Weight: 63 kg

DRUGS (3)
  1. ADVIL COLD, COUGH + FLU NIGHTTIME [Suspect]
     Active Substance: DIPHENHYDRAMINE\IBUPROFEN
     Indication: INFLUENZA LIKE ILLNESS
  2. ADVIL COLD, COUGH + FLU NIGHTTIME [Suspect]
     Active Substance: DIPHENHYDRAMINE\IBUPROFEN
     Indication: NASOPHARYNGITIS
     Dosage: 2 DF, UNK
     Route: 048
  3. TRUVADA [Concomitant]
     Active Substance: EMTRICITABINE\TENOFOVIR DISOPROXIL FUMARATE
     Dosage: UNK

REACTIONS (5)
  - Dyspnoea [Unknown]
  - Heart rate increased [Unknown]
  - Disorientation [Unknown]
  - Dehydration [Unknown]
  - Palpitations [Unknown]
